FAERS Safety Report 8774591 (Version 3)
Quarter: 2012Q4

REPORT INFORMATION
  Report Type: 
  Country: CH (occurrence: CH)
  Receive Date: 20120907
  Receipt Date: 20121121
  Transmission Date: 20130627
  Serious: Yes (Other)
  Sender: FDA-Public Use
  Company Number: CH-ALLERGAN-1212351US

PATIENT
  Age: 61 Year
  Sex: Female

DRUGS (3)
  1. BOTULINUM TOXIN TYPE A UNK [Suspect]
     Indication: GLABELLAR FROWN LINES
     Dosage: UNK UNK, single
     Route: 030
     Dates: start: 20120419, end: 20120419
  2. JUVEDERM [Suspect]
     Indication: WRINKLES
  3. UNSPECIFIED INGREDIENT [Suspect]
     Indication: WRINKLES

REACTIONS (4)
  - Oedema [Recovering/Resolving]
  - Optic nerve disorder [Recovered/Resolved with Sequelae]
  - Eye swelling [Recovering/Resolving]
  - Injection site pain [Unknown]
